FAERS Safety Report 5514239-5 (Version None)
Quarter: 2007Q4

REPORT INFORMATION
  Report Type: 
  Country: None (occurrence: None)
  Receive Date: 20071113
  Receipt Date: 20071029
  Transmission Date: 20080405
  Serious: Yes (Hospitalization)
  Sender: FDA-Public Use
  Company Number: JP-ELI_LILLY_AND_COMPANY-JP200711001786

PATIENT
  Sex: Female
  Weight: 36 kg

DRUGS (9)
  1. GEMCITABINE HCL [Suspect]
     Indication: PANCREATIC CARCINOMA NON-RESECTABLE
     Dosage: 1000 MG/M2, OTHER
     Route: 042
     Dates: start: 20070615, end: 20071019
  2. TARCEVA [Suspect]
     Indication: PANCREATIC CARCINOMA NON-RESECTABLE
     Dosage: 100 MG, DAILY (1/D)
     Route: 048
     Dates: start: 20070615, end: 20071025
  3. AMOBAN [Concomitant]
     Dosage: 7.5 MG, DAILY (1/D)
     Route: 048
     Dates: start: 20070810
  4. FAMOTIDINE [Concomitant]
     Dosage: 20 MG, UNK
     Route: 048
     Dates: start: 20070914, end: 20071025
  5. SELBEX [Concomitant]
     Dosage: 50 MG, UNK
     Route: 048
     Dates: start: 20070921, end: 20071024
  6. ZOLPIDEM [Concomitant]
     Dosage: 10 MG, DAILY (1/D)
     Route: 048
     Dates: start: 20070921
  7. MAGNESIUM OXIDE [Concomitant]
     Dosage: UNK, AS NEEDED
     Route: 048
     Dates: start: 20071012, end: 20071024
  8. OXYCONTIN [Concomitant]
     Indication: CANCER PAIN
     Dosage: 10 MG, 2/D
     Route: 048
  9. OXYCODONE HYDROCHLORIDE [Concomitant]
     Indication: CANCER PAIN
     Dosage: 2.5 MG, AS NEEDED
     Route: 048

REACTIONS (2)
  - GASTRIC DISORDER [None]
  - WEIGHT DECREASED [None]
